FAERS Safety Report 18448896 (Version 1)
Quarter: 2020Q4

REPORT INFORMATION
  Report Type: Other
  Country: IT (occurrence: IT)
  Receive Date: 20201030
  Receipt Date: 20201030
  Transmission Date: 20210114
  Serious: Yes (Other)
  Sender: FDA-Public Use
  Company Number: IT-NAVINTA LLC-000107

PATIENT
  Age: 46 Year
  Sex: Female

DRUGS (10)
  1. CARMUSTINE. [Suspect]
     Active Substance: CARMUSTINE
     Indication: LYMPHOMA
     Dosage: 300 MG/SQ.MT, ON DAY-1 OF BEAM REGIMEN.
  2. RITUXIMAB. [Suspect]
     Active Substance: RITUXIMAB
     Indication: LYMPHOMA
     Dosage: 375 MG/SQ.MT, ON DAYS-2, 14, 29, 36 AS INDUCTION COURSE AND ON DAYS-52, 60 AS CONSOLIDATION THERAPY.
  3. FOTEMUSTINE [Suspect]
     Active Substance: FOTEMUSTINE
     Indication: LYMPHOMA
     Dosage: 150 MG/SQ.MT/DAY ON DAYS-1 AND 2, IF CARMUSTINE WAS NOT AVAILABLE.
  4. CYTARABIN [Suspect]
     Active Substance: CYTARABINE
     Indication: LYMPHOMA
     Dosage: 2 G/ SQ.MT AS INDUCTION COURSE AND 200 MG/SQ.MT EVERY 12 HOURS AS BEAM REGIMEN.
  5. METHOTREXATE. [Suspect]
     Active Substance: METHOTREXATE
     Indication: LYMPHOMA
     Dosage: INDUCTION COURSE.
  6. ETOPOSIDE. [Suspect]
     Active Substance: ETOPOSIDE
     Indication: LYMPHOMA
     Dosage: 250 MG/SQ.MT AS INDUCTION COURSE AND 100 MG/SQ.MT AS BEAM REGIMEN.
  7. MELPHALAN. [Suspect]
     Active Substance: MELPHALAN
     Indication: LYMPHOMA
     Dosage: 140 MG/SQ.MT ON DAY-6 OF BEAM REGIMEN.
  8. DOXORUBICIN [Suspect]
     Active Substance: DOXORUBICIN
     Indication: LYMPHOMA
     Dosage: 50 MG/SQ.MT, IV BOLUS, ON DAY-29 OF INDUCTION COURSE.
     Route: 042
  9. CYCLOPHOSPHAMIDE. [Suspect]
     Active Substance: CYCLOPHOSPHAMIDE
     Indication: LYMPHOMA
     Dosage: 500 MG/SQ.MT, OVER 1 HOUR INFUSION, ON DAY-0,1 OF INDUCTION COURSE.
  10. VINCRISTINE [Suspect]
     Active Substance: VINCRISTINE
     Indication: LYMPHOMA
     Dosage: 2 MG TOTAL DOSE, IV BOLUS ON DAY-0,36 OF INDUCTION COURSE.
     Route: 042

REACTIONS (1)
  - Histiocytic sarcoma [Recovered/Resolved]
